FAERS Safety Report 6426854-5 (Version None)
Quarter: 2009Q4

REPORT INFORMATION
  Report Type: 
  Country: None (occurrence: None)
  Receive Date: 20091030
  Receipt Date: 20091022
  Transmission Date: 20100525
  Serious: Yes (Hospitalization)
  Sender: FDA-Public Use
  Company Number: GXKR2009US11613

PATIENT
  Age: 56 Year
  Sex: Male
  Weight: 56.2 kg

DRUGS (17)
  1. WARFARIN SODIUM [Suspect]
     Dosage: 5 MG/DAY, 3.5 MG/DAY, 3 MG/DAY, 2.5 MG/DAY, 3.5 MG/DAY
     Dates: start: 20070322, end: 20070329
  2. WARFARIN SODIUM [Suspect]
     Dosage: 5 MG/DAY, 3.5 MG/DAY, 3 MG/DAY, 2.5 MG/DAY, 3.5 MG/DAY
     Dates: start: 20070201
  3. WARFARIN SODIUM [Suspect]
     Dosage: 5 MG/DAY, 3.5 MG/DAY, 3 MG/DAY, 2.5 MG/DAY, 3.5 MG/DAY
     Dates: start: 20070313
  4. WARFARIN SODIUM [Suspect]
     Dosage: 5 MG/DAY, 3.5 MG/DAY, 3 MG/DAY, 2.5 MG/DAY, 3.5 MG/DAY
     Dates: start: 20070315
  5. WARFARIN SODIUM [Suspect]
     Dosage: 5 MG/DAY, 3.5 MG/DAY, 3 MG/DAY, 2.5 MG/DAY, 3.5 MG/DAY
     Dates: start: 20070331
  6. WARFARIN SODIUM [Suspect]
     Dosage: 5 MG/DAY, 3.5 MG/DAY, 3 MG/DAY, 2.5 MG/DAY, 3.5 MG/DAY
     Dates: start: 20070406
  7. MARIJUANA                   (CANNABIS, CANNABIS SATIVA) [Suspect]
     Dosage: APPROX 3-4 TIMES/WEEK DURING THE PAST 4 WEEKS, FREQUENCY INCREASED TO 2-2.5G/WK (FROM 0.5 G/WK)
  8. FUROSEMIDE [Concomitant]
  9. METOPROLOL          (METOPROLOL) [Concomitant]
  10. POTASSIUM CHLORIDE [Concomitant]
  11. TRAMADOL HCL [Concomitant]
  12. CARBAMAZEPINE [Concomitant]
  13. VALPROIC ACID [Concomitant]
  14. SERTRALINE HCL [Concomitant]
  15. OMEPRAZOLE [Concomitant]
  16. CLOPIDOGREL [Concomitant]
  17. ACETYLSALICYLIC ACIDI             (ACETYLSALICYLIC ACID) [Concomitant]

REACTIONS (10)
  - CONTUSION [None]
  - DEPRESSION [None]
  - DRUG INTERACTION [None]
  - DRUG LEVEL BELOW THERAPEUTIC [None]
  - EPISTAXIS [None]
  - GASTRIC ULCER [None]
  - GASTROINTESTINAL HAEMORRHAGE [None]
  - HAEMOGLOBIN DECREASED [None]
  - INTERNATIONAL NORMALISED RATIO INCREASED [None]
  - SYNCOPE [None]
